FAERS Safety Report 22031977 (Version 2)
Quarter: 2023Q1

REPORT INFORMATION
  Report Type: Spontaneous
  Country: ES (occurrence: ES)
  Receive Date: 20230224
  Receipt Date: 20230303
  Transmission Date: 20230418
  Serious: Yes (Hospitalization)
  Sender: FDA-Public Use
  Company Number: ES-LUNDBECK-DKLU3058363

PATIENT
  Age: 74 Year
  Sex: Female

DRUGS (4)
  1. VORTIOXETINE [Suspect]
     Active Substance: VORTIOXETINE
     Indication: Major depression
     Dosage: 20 MILLIGRAM
     Route: 065
  2. VORTIOXETINE [Suspect]
     Active Substance: VORTIOXETINE
     Dosage: 10 MILLIGRAM
     Route: 065
  3. DESVENLAFAXINE [Suspect]
     Active Substance: DESVENLAFAXINE
     Indication: Major depression
     Dosage: 150 MILLIGRAM
     Route: 065
  4. DESVENLAFAXINE [Suspect]
     Active Substance: DESVENLAFAXINE
     Dosage: 50 MILLIGRAM
     Route: 065

REACTIONS (3)
  - Dyspnoea [Recovered/Resolved]
  - Blood catecholamines increased [Recovered/Resolved]
  - Hyperhidrosis [Recovered/Resolved]
